FAERS Safety Report 25660181 (Version 1)
Quarter: 2025Q3

REPORT INFORMATION
  Report Type: Spontaneous
  Country: EU (occurrence: EU)
  Receive Date: 20250808
  Receipt Date: 20250808
  Transmission Date: 20251020
  Serious: Yes (Other)
  Sender: ROCHE
  Company Number: EU-002147023-NVSC2025DE123504

PATIENT
  Age: 47 Year
  Sex: Male

DRUGS (3)
  1. RANIBIZUMAB [Suspect]
     Active Substance: RANIBIZUMAB
     Indication: Diabetic retinopathy
     Route: 050
  2. RANIBIZUMAB [Suspect]
     Active Substance: RANIBIZUMAB
     Indication: Retinal vein occlusion
  3. RANIBIZUMAB [Suspect]
     Active Substance: RANIBIZUMAB
     Indication: Macular oedema

REACTIONS (2)
  - Retinal ischaemia [Recovered/Resolved]
  - Visual acuity reduced [Recovered/Resolved]
